FAERS Safety Report 12105874 (Version 1)
Quarter: 2016Q1

REPORT INFORMATION
  Report Type: Report from Study
  Country: CO (occurrence: CO)
  Receive Date: 20160223
  Receipt Date: 20160223
  Transmission Date: 20160526
  Serious: Yes (Hospitalization)
  Sender: FDA-Public Use
  Company Number: CO-ABBVIE-16K-036-1565465-00

PATIENT
  Age: 61 Year
  Sex: Female
  Weight: 60 kg

DRUGS (3)
  1. HUMIRA [Suspect]
     Active Substance: ADALIMUMAB
     Indication: RHEUMATOID ARTHRITIS
     Route: 058
     Dates: start: 20130709
  2. FOLIC ACID. [Concomitant]
     Active Substance: FOLIC ACID
     Indication: PRODUCT USED FOR UNKNOWN INDICATION
  3. CALCIUM [Concomitant]
     Active Substance: CALCIUM
     Indication: PRODUCT USED FOR UNKNOWN INDICATION

REACTIONS (8)
  - Mitral valve incompetence [Unknown]
  - Ventricular dysfunction [Unknown]
  - Chest pain [Recovering/Resolving]
  - Pulmonary hypertension [Unknown]
  - Diastolic dysfunction [Unknown]
  - Congestive cardiomyopathy [Unknown]
  - Asthenia [Recovering/Resolving]
  - Respiratory distress [Recovering/Resolving]

NARRATIVE: CASE EVENT DATE: 20151219
